FAERS Safety Report 17727239 (Version 2)
Quarter: 2020Q2

REPORT INFORMATION
  Report Type: Report from Study
  Country: None (occurrence: US)
  Receive Date: 20200430
  Receipt Date: 20200605
  Transmission Date: 20200714
  Serious: Yes (Hospitalization, Other)
  Sender: FDA-Public Use
  Company Number: US-ABBVIE-20K-163-3383565-00

PATIENT
  Age: 36 Year
  Sex: Female

DRUGS (1)
  1. HUMIRA [Suspect]
     Active Substance: ADALIMUMAB
     Indication: HIDRADENITIS
     Route: 058
     Dates: start: 20191003, end: 2020

REACTIONS (14)
  - Cardiac failure congestive [Recovering/Resolving]
  - Joint swelling [Unknown]
  - Atrial fibrillation [Recovering/Resolving]
  - Pneumonia [Recovering/Resolving]
  - Furuncle [Unknown]
  - Pneumothorax [Recovering/Resolving]
  - Fall [Recovering/Resolving]
  - Incoherent [Recovering/Resolving]
  - Rib fracture [Recovering/Resolving]
  - Pain [Unknown]
  - Peripheral swelling [Unknown]
  - Hidradenitis [Not Recovered/Not Resolved]
  - Grip strength decreased [Recovering/Resolving]
  - Pericardial effusion [Not Recovered/Not Resolved]

NARRATIVE: CASE EVENT DATE: 2020
